FAERS Safety Report 8885770 (Version 1)
Quarter: 2012Q4

REPORT INFORMATION
  Report Type: 
  Country: US (occurrence: US)
  Receive Date: 20121102
  Receipt Date: 20121102
  Transmission Date: 20130627
  Serious: Yes (Other)
  Sender: FDA-Public Use
  Company Number: US-PFIZER INC-2012272457

PATIENT
  Age: 51 Year
  Sex: Male
  Weight: 104 kg

DRUGS (1)
  1. XALKORI [Suspect]
     Dosage: UNK
     Route: 048

REACTIONS (3)
  - Pericardial effusion [Unknown]
  - Pulmonary oedema [Unknown]
  - Oedema [Unknown]
